FAERS Safety Report 10309597 (Version 3)
Quarter: 2014Q3

REPORT INFORMATION
  Report Type: Report from Study
  Country: NL (occurrence: NL)
  Receive Date: 20140717
  Receipt Date: 20140823
  Transmission Date: 20150326
  Serious: Yes (Hospitalization)
  Sender: FDA-Public Use
  Company Number: NL-IPSEN BIOPHARMACEUTICALS, INC.-2014-3502

PATIENT
  Age: 71 Year
  Sex: Male

DRUGS (4)
  1. SOMATULINE AUTOGEL [Suspect]
     Active Substance: LANREOTIDE ACETATE
     Indication: OFF LABEL USE
  2. SOMATULINE AUTOGEL [Suspect]
     Active Substance: LANREOTIDE ACETATE
     Indication: PROPHYLAXIS
     Dosage: 30 MG
     Route: 030
     Dates: start: 20140623
  3. SOMATULINE AUTOGEL [Suspect]
     Active Substance: LANREOTIDE ACETATE
     Indication: PANCREATIC CYST
  4. SOMATULINE AUTOGEL [Suspect]
     Active Substance: LANREOTIDE ACETATE
     Indication: SPLENECTOMY

REACTIONS (3)
  - Surgery [Unknown]
  - Off label use [None]
  - Abscess [Recovering/Resolving]

NARRATIVE: CASE EVENT DATE: 2014
